FAERS Safety Report 9153942 (Version 1)
Quarter: 2013Q1

REPORT INFORMATION
  Report Type: Spontaneous
  Country: US (occurrence: None)
  Receive Date: 20130306
  Receipt Date: 20130306
  Transmission Date: 20140127
  Serious: No
  Sender: FDA-Public Use
  Company Number: None

PATIENT
  Age: 20 Year
  Sex: Male

DRUGS (2)
  1. PRISTIQ [Suspect]
     Indication: ANXIETY
     Dosage: 50 MG QD
  2. ADDERALL [Concomitant]

REACTIONS (13)
  - Sleep terror [None]
  - Tachycardia [None]
  - Sleep disorder [None]
  - Hyperhidrosis [None]
  - Dyspnoea [None]
  - Fatigue [None]
  - Somnolence [None]
  - Feeling abnormal [None]
  - Drug withdrawal syndrome [None]
  - Irritability [None]
  - Diarrhoea [None]
  - Nervousness [None]
  - Headache [None]
